FAERS Safety Report 19441557 (Version 2)
Quarter: 2021Q2

REPORT INFORMATION
  Report Type: Report from Study
  Country: CA (occurrence: CA)
  Receive Date: 20210621
  Receipt Date: 20210625
  Transmission Date: 20210717
  Serious: Yes (Hospitalization, Other)
  Sender: FDA-Public Use
  Company Number: CA-JNJFOC-20210630353

PATIENT
  Age: 30 Year
  Sex: Male
  Weight: 46 kg

DRUGS (1)
  1. REMICADE [Suspect]
     Active Substance: INFLIXIMAB
     Indication: CROHN^S DISEASE
     Route: 042
     Dates: start: 20100316

REACTIONS (2)
  - Osteomyelitis [Unknown]
  - Staphylococcal infection [Not Recovered/Not Resolved]
